FAERS Safety Report 6266479-8 (Version None)
Quarter: 2009Q3

REPORT INFORMATION
  Report Type: 
  Country: None (occurrence: None)
  Receive Date: 20090710
  Receipt Date: 20090512
  Transmission Date: 20100115
  Serious: Yes (Hospitalization)
  Sender: FDA-Public Use
  Company Number: WAES 0905FRA00050

PATIENT
  Age: 49 Year
  Sex: Female

DRUGS (11)
  1. CAP VORINOSTAT [Suspect]
     Indication: BREAST CANCER
     Dosage: 200 MG/DAILY/ PO
     Route: 048
     Dates: start: 20090317, end: 20090323
  2. CAP VORINOSTAT [Suspect]
     Indication: BREAST CANCER
     Dosage: 200 MG/DAILY/ PO
     Route: 048
     Dates: start: 20090414, end: 20090420
  3. VINORELBINE TARTRATE [Suspect]
     Indication: BREAST CANCER
     Dosage: 25 MG/M[2]/DAILY/IV
     Route: 042
     Dates: start: 20090317, end: 20090317
  4. VINORELBINE TARTRATE [Suspect]
     Indication: BREAST CANCER
     Dosage: 25 MG/M[2]/DAILY/IV
     Route: 042
     Dates: start: 20090324, end: 20090324
  5. VINORELBINE TARTRATE [Suspect]
     Indication: BREAST CANCER
     Dosage: 25 MG/M[2]/DAILY/IV
     Route: 042
     Dates: start: 20090407, end: 20090407
  6. VINORELBINE TARTRATE [Suspect]
     Indication: BREAST CANCER
     Dosage: 25 MG/M[2]/DAILY/IV
     Route: 042
     Dates: start: 20090414, end: 20090414
  7. VINORELBINE TARTRATE [Suspect]
     Indication: BREAST CANCER
     Dosage: 25 MG/M[2]/DAILY/IV
     Route: 042
     Dates: start: 20090428, end: 20090428
  8. VINORELBINE TARTRATE [Suspect]
     Indication: BREAST CANCER
     Dosage: 25 MG/M[2]/DAILY/IV
     Route: 042
     Dates: start: 20090505, end: 20090505
  9. BROMAZEPAM [Concomitant]
  10. ESOMEPRAZOLE MAGNESIUM [Concomitant]
  11. . [Concomitant]

REACTIONS (4)
  - APLASIA [None]
  - HAEMOGLOBIN DECREASED [None]
  - THROMBOCYTOPENIA [None]
  - WHITE BLOOD CELL COUNT DECREASED [None]
